FAERS Safety Report 21176995 (Version 1)
Quarter: 2022Q3

REPORT INFORMATION
  Report Type: Spontaneous
  Country: US (occurrence: US)
  Receive Date: 20220805
  Receipt Date: 20220805
  Transmission Date: 20221027
  Serious: No
  Sender: FDA-Public Use
  Company Number: US-ALLERGAN-2218781US

PATIENT
  Sex: Male

DRUGS (7)
  1. VUITY [Suspect]
     Active Substance: PILOCARPINE HYDROCHLORIDE
     Indication: Presbyopia
     Dosage: 1 GTT, SINGLE
  2. VUITY [Suspect]
     Active Substance: PILOCARPINE HYDROCHLORIDE
     Dosage: 2 GTT, BID
     Route: 047
     Dates: end: 20220608
  3. VUITY [Suspect]
     Active Substance: PILOCARPINE HYDROCHLORIDE
     Dosage: 2 GTT, QD
     Route: 047
     Dates: start: 202205
  4. ALLEGRA [Concomitant]
     Active Substance: FEXOFENADINE HYDROCHLORIDE
     Indication: Hypersensitivity
     Dosage: UNK, QD
     Route: 048
  5. VISINE [TETRYZOLINE HYDROCHLORIDE] [Concomitant]
     Indication: Hypersensitivity
  6. VISINE [TETRYZOLINE HYDROCHLORIDE] [Concomitant]
     Indication: Eye pruritus
  7. VITAMINS NOS [Concomitant]
     Active Substance: VITAMINS
     Indication: Supplementation therapy
     Dosage: UNK, QD
     Route: 048

REACTIONS (9)
  - Eye swelling [Recovered/Resolved]
  - Swelling of eyelid [Recovered/Resolved]
  - Eyelid thickening [Recovered/Resolved]
  - Eyelid pain [Recovered/Resolved]
  - Inappropriate schedule of product administration [Unknown]
  - Visual impairment [Recovered/Resolved]
  - Drug ineffective [Unknown]
  - Eye irritation [Recovered/Resolved]
  - Eye pain [Recovered/Resolved]
